FAERS Safety Report 12342806 (Version 2)
Quarter: 2016Q2

REPORT INFORMATION
  Report Type: Spontaneous
  Country: US (occurrence: US)
  Receive Date: 20160506
  Receipt Date: 20160527
  Transmission Date: 20160815
  Serious: No
  Sender: FDA-Public Use
  Company Number: US-MDT-ADR-2016-00824

PATIENT
  Age: 58 Year
  Sex: Female

DRUGS (3)
  1. LIORESAL [Suspect]
     Active Substance: BACLOFEN
     Dosage: 119.80 MCG/DAY
     Route: 037
     Dates: start: 20160405
  2. LIORESAL [Suspect]
     Active Substance: BACLOFEN
     Dosage: 119 MCG/DAY
     Route: 037
  3. LIORESAL [Suspect]
     Active Substance: BACLOFEN
     Dosage: 2,891.66 MCG/DAY
     Route: 037
     Dates: start: 20160405, end: 20160405

REACTIONS (3)
  - Muscle spasticity [Unknown]
  - Incorrect drug administration rate [Recovered/Resolved]
  - Muscle spasms [Unknown]

NARRATIVE: CASE EVENT DATE: 20160405
